FAERS Safety Report 17447355 (Version 1)
Quarter: 2020Q1

REPORT INFORMATION
  Report Type: Spontaneous
  Country: IN (occurrence: IN)
  Receive Date: 20200221
  Receipt Date: 20200221
  Transmission Date: 20200409
  Serious: Yes (Other)
  Sender: FDA-Public Use
  Company Number: IN-BAUSCH-BL-2020-004534

PATIENT
  Age: 34 Year
  Sex: Male

DRUGS (6)
  1. FLUCONAZOLE. [Concomitant]
     Active Substance: FLUCONAZOLE
     Indication: MENINGITIS CRYPTOCOCCAL
     Route: 048
  2. LIPOSOMAL AMPHOTERICIN B [Concomitant]
     Active Substance: AMPHOTERICIN B
     Indication: MENINGITIS CRYPTOCOCCAL
     Dosage: CONTINUED FOR A TOTAL OF SIX WEEKS (DAY 28- DAY 70)
     Route: 065
  3. FLUCONAZOLE. [Concomitant]
     Active Substance: FLUCONAZOLE
     Dosage: CONSOLIDATION WITH FLUCONAZOLE; FROM D70- DAY 130 (2 MONTHS), 400 MG/DAY FROM D130- D480 (12 MONTHS)
     Route: 048
  4. FLUCYTOSINE. [Suspect]
     Active Substance: FLUCYTOSINE
     Indication: MENINGITIS CRYPTOCOCCAL
     Dosage: INDUCTION THERAPY
     Route: 065
  5. FLUCYTOSINE. [Suspect]
     Active Substance: FLUCYTOSINE
     Dosage: INDUCTION THERAPY RE-INITIATED
     Route: 065
  6. AMPHOTERICIN B DEOXYCHOLATE [Concomitant]
     Active Substance: AMPHOTERICIN B
     Indication: MENINGITIS CRYPTOCOCCAL
     Route: 042

REACTIONS (2)
  - Acute motor-sensory axonal neuropathy [Recovering/Resolving]
  - Pseudomembranous colitis [Unknown]
